FAERS Safety Report 16840970 (Version 1)
Quarter: 2019Q3

REPORT INFORMATION
  Report Type: Spontaneous
  Country: US (occurrence: US)
  Receive Date: 20190923
  Receipt Date: 20190923
  Transmission Date: 20191005
  Serious: Yes (Other)
  Sender: FDA-Public Use
  Company Number: US-GALDERMA-US19058973

PATIENT
  Age: 39 Year
  Sex: Male

DRUGS (1)
  1. SOOLANTRA [Suspect]
     Active Substance: IVERMECTIN
     Indication: ROSACEA
     Dosage: 1%
     Route: 061
     Dates: start: 2019, end: 20190912

REACTIONS (4)
  - Eye discharge [Not Recovered/Not Resolved]
  - Swelling of eyelid [Not Recovered/Not Resolved]
  - Eye infection bacterial [Not Recovered/Not Resolved]
  - Erythema of eyelid [Not Recovered/Not Resolved]

NARRATIVE: CASE EVENT DATE: 201909
